FAERS Safety Report 7482750-6 (Version None)
Quarter: 2011Q2

REPORT INFORMATION
  Report Type: 
  Country: None (occurrence: None)
  Receive Date: 20110516
  Receipt Date: 20110504
  Transmission Date: 20111010
  Serious: Yes (Hospitalization)
  Sender: FDA-Public Use
  Company Number: US-UCBSA-032304

PATIENT
  Sex: Female

DRUGS (1)
  1. CIMZIA [Suspect]
     Indication: CROHN'S DISEASE
     Dosage: 400 MG MONTHLY BEFORE STOPPED
     Route: 058
     Dates: start: 20100101, end: 20110301

REACTIONS (3)
  - GASTROINTESTINAL MOTILITY DISORDER [None]
  - ABDOMINAL ADHESIONS [None]
  - DIARRHOEA [None]
